FAERS Safety Report 25134569 (Version 1)
Quarter: 2025Q1

REPORT INFORMATION
  Report Type: Spontaneous
  Country: US (occurrence: US)
  Receive Date: 20250328
  Receipt Date: 20250328
  Transmission Date: 20250409
  Serious: No
  Sender: COSETTE PHARMACEUTICALS INC
  Company Number: US-COSETTE-CP2025US000281

PATIENT
  Age: 79 Year
  Sex: Female
  Weight: 49.44 kg

DRUGS (3)
  1. NYSTATIN [Suspect]
     Active Substance: NYSTATIN
     Indication: Vaginal cyst
     Route: 061
     Dates: start: 20250311, end: 20250312
  2. IBUPROFEN [Concomitant]
     Active Substance: IBUPROFEN
     Indication: Product used for unknown indication
     Route: 065
  3. ATORVASTATIN [Concomitant]
     Active Substance: ATORVASTATIN
     Indication: Product used for unknown indication
     Route: 065

REACTIONS (8)
  - Vulvovaginal pain [Recovering/Resolving]
  - Gait disturbance [Recovering/Resolving]
  - Eating disorder [Recovering/Resolving]
  - Vulvovaginal burning sensation [Recovering/Resolving]
  - Swelling [Recovering/Resolving]
  - Abdominal pain [Recovering/Resolving]
  - Pruritus [Recovering/Resolving]
  - Product use in unapproved indication [Unknown]

NARRATIVE: CASE EVENT DATE: 20250301
